FAERS Safety Report 4808535-4 (Version None)
Quarter: 2005Q4

REPORT INFORMATION
  Report Type: 
  Country: None (occurrence: None)
  Receive Date: 20051021
  Receipt Date: 20030514
  Transmission Date: 20060501
  Serious: No
  Sender: FDA-Public Use
  Company Number: CA_030505954

PATIENT
  Sex: Female

DRUGS (3)
  1. ZYPREXA [Suspect]
     Indication: BIPOLAR DISORDER
     Dosage: 7.5 MG/DAY
     Route: 048
     Dates: start: 20030401
  2. ZYPREXA [Suspect]
     Indication: DEPRESSION
     Dosage: 7.5 MG/DAY
     Route: 048
     Dates: start: 20030401
  3. WELLBUTRIN [Concomitant]

REACTIONS (4)
  - ALANINE AMINOTRANSFERASE INCREASED [None]
  - ASPARTATE AMINOTRANSFERASE INCREASED [None]
  - BLOOD CREATINE PHOSPHOKINASE INCREASED [None]
  - PLATELET COUNT INCREASED [None]
